FAERS Safety Report 13920973 (Version 2)
Quarter: 2017Q4

REPORT INFORMATION
  Report Type: Spontaneous
  Country: HU (occurrence: HU)
  Receive Date: 20170830
  Receipt Date: 20171214
  Transmission Date: 20180320
  Serious: Yes (Disabling)
  Sender: FDA-Public Use
  Company Number: PHHY2017HU124832

PATIENT
  Age: 64 Year
  Sex: Male

DRUGS (5)
  1. MAGNE B6 [Concomitant]
     Active Substance: MAGNESIUM\PYRIDOXINE
     Indication: MUSCULOSKELETAL STIFFNESS
     Dosage: AS NECESSARY
     Route: 065
  2. CLIOQUINOL [Concomitant]
     Active Substance: CLIOQUINOL
     Indication: CROHN^S DISEASE
     Route: 048
  3. SALOFALK [Concomitant]
     Active Substance: MESALAMINE
     Indication: CROHN^S DISEASE
     Dosage: 2 DF, TID, 2 TABLETS 2-3 TIMES DAILY
     Route: 065
  4. OMEPRAZOL HEXAL [Suspect]
     Active Substance: OMEPRAZOLE
     Indication: GASTROOESOPHAGEAL REFLUX DISEASE
     Dosage: 20 MG, QD
     Route: 048
     Dates: start: 20170714, end: 20170715
  5. ZINC SULFATE [Concomitant]
     Active Substance: ZINC SULFATE\ZINC SULFATE ANHYDROUS
     Indication: ZINC DEFICIENCY
     Dosage: 1 DF, QD, DF = 1 TEASPOON
     Route: 048

REACTIONS (6)
  - Rash [Recovered/Resolved]
  - Arthralgia [Not Recovered/Not Resolved]
  - Product label on wrong product [Unknown]
  - Dysuria [Recovered/Resolved]
  - Myalgia [Not Recovered/Not Resolved]
  - Constipation [Recovered/Resolved]

NARRATIVE: CASE EVENT DATE: 20170716
